FAERS Safety Report 5426939-6 (Version None)
Quarter: 2007Q3

REPORT INFORMATION
  Report Type: 
  Country: None (occurrence: None)
  Receive Date: 20070731
  Receipt Date: 20070420
  Transmission Date: 20080115
  Serious: No
  Sender: FDA-Public Use
  Company Number: US200704004938

PATIENT
  Age: 65 Year

DRUGS (6)
  1. BYETTA [Suspect]
     Indication: TYPE 2 DIABETES MELLITUS
     Dosage: 5 UG, 2/D, SUBCUTANEOUS, 10UG, 2/D, SUBCUTANEOUS
     Route: 058
     Dates: start: 20070227, end: 20070401
  2. BYETTA [Suspect]
     Indication: TYPE 2 DIABETES MELLITUS
     Dosage: 5 UG, 2/D, SUBCUTANEOUS, 10UG, 2/D, SUBCUTANEOUS
     Route: 058
     Dates: start: 20070401
  3. EXENATIDE 5MCG PEN, DISPOSABLE DEVICE (EXENATIDE PEN (5MCG)) PEN, DISP [Concomitant]
  4. GLIPIZIDE [Concomitant]
  5. RANITIDINE [Concomitant]
  6. MYLANTA (CALCIUM CARBONATE) [Concomitant]

REACTIONS (2)
  - BLOOD GLUCOSE INCREASED [None]
  - OESOPHAGITIS [None]
